FAERS Safety Report 6639773-6 (Version None)
Quarter: 2010Q1

REPORT INFORMATION
  Report Type: 
  Country: None (occurrence: None)
  Receive Date: 20100318
  Receipt Date: 20100316
  Transmission Date: 20100710
  Serious: Yes (Death, Hospitalization)
  Sender: FDA-Public Use
  Company Number: PHHY2010MX03969

PATIENT
  Age: 78 Year
  Sex: Female

DRUGS (1)
  1. RASILEZ [Suspect]
     Indication: HYPERTENSION
     Dosage: 1 TABLET (300 MG) PER DAY
     Dates: start: 20081101

REACTIONS (4)
  - ANGINA UNSTABLE [None]
  - CARDIO-RESPIRATORY ARREST [None]
  - INFARCTION [None]
  - PULMONARY OEDEMA [None]
